FAERS Safety Report 20070735 (Version 1)
Quarter: 2021Q4

REPORT INFORMATION
  Report Type: Spontaneous
  Country: US (occurrence: None)
  Receive Date: 20211115
  Receipt Date: 20211115
  Transmission Date: 20220303
  Serious: No
  Sender: FDA-Public Use
  Company Number: None

PATIENT
  Age: 49 Year
  Sex: Female
  Weight: 81.6 kg

DRUGS (1)
  1. REGEN-COV [Suspect]
     Active Substance: CASIRIVIMAB\IMDEVIMAB
     Indication: Coronavirus test positive
     Dosage: FREQUENCY : ONCE;?
     Route: 041
     Dates: start: 20211113, end: 20211113

REACTIONS (9)
  - Infusion related reaction [None]
  - Nausea [None]
  - Abdominal discomfort [None]
  - Cough [None]
  - Skin tightness [None]
  - Erythema [None]
  - Drooling [None]
  - Dyspnoea [None]
  - Oxygen saturation decreased [None]

NARRATIVE: CASE EVENT DATE: 20211113
